FAERS Safety Report 23580010 (Version 1)
Quarter: 2024Q1

REPORT INFORMATION
  Report Type: Spontaneous
  Country: US (occurrence: None)
  Receive Date: 20240228
  Receipt Date: 20240228
  Transmission Date: 20240410
  Serious: Yes (Hospitalization)
  Sender: FDA-Public Use
  Company Number: None

PATIENT
  Age: 43 Year
  Sex: Male
  Weight: 171 kg

DRUGS (1)
  1. TRULICITY [Suspect]
     Active Substance: DULAGLUTIDE
     Indication: Type 2 diabetes mellitus
     Dosage: ONCE PER WEEK INTRAMUSCULAR
     Route: 030
     Dates: start: 20050115

REACTIONS (2)
  - Product supply issue [None]
  - Therapy change [None]

NARRATIVE: CASE EVENT DATE: 20240224
